FAERS Safety Report 17985204 (Version 1)
Quarter: 2020Q3

REPORT INFORMATION
  Report Type: Spontaneous
  Country: HR (occurrence: HR)
  Receive Date: 20200706
  Receipt Date: 20200706
  Transmission Date: 20201103
  Serious: Yes (Other)
  Sender: FDA-Public Use
  Company Number: HR-ABBVIE-20K-216-3456149-00

PATIENT
  Age: 76 Year
  Sex: Male

DRUGS (8)
  1. VENETOCLAX. [Suspect]
     Active Substance: VENETOCLAX
     Indication: CHRONIC LYMPHOCYTIC LEUKAEMIA
     Dosage: GRADUAL INCREASE OF DOSE IN COBINATION WITH IBRUTINIB
     Route: 048
     Dates: start: 20191118
  2. VENETOCLAX. [Suspect]
     Active Substance: VENETOCLAX
     Dosage: IN COMBINATION WITH RITUXIMAB
     Route: 048
     Dates: start: 20200211, end: 20200419
  3. VENETOCLAX. [Suspect]
     Active Substance: VENETOCLAX
     Dosage: IN COMBINATION WITH RITUXIMAB
     Route: 048
     Dates: start: 20200420, end: 20200620
  4. RITUXIMAB. [Concomitant]
     Active Substance: RITUXIMAB
     Indication: CHRONIC LYMPHOCYTIC LEUKAEMIA
     Dates: start: 201912, end: 20200620
  5. IBRUTINIB [Concomitant]
     Active Substance: IBRUTINIB
     Indication: CHRONIC LYMPHOCYTIC LEUKAEMIA
     Dates: start: 20191118, end: 20191215
  6. FILGRASTIM [Concomitant]
     Active Substance: FILGRASTIM
     Indication: PRODUCT USED FOR UNKNOWN INDICATION
     Dosage: SHORT ACTING FILGRASTIM USED IN TWO OCCASIONS
     Dates: start: 202002
  7. VENETOCLAX. [Suspect]
     Active Substance: VENETOCLAX
     Dosage: IN COMBINATION WITH RITUXIMAB
     Route: 048
     Dates: start: 202002
  8. VENETOCLAX. [Suspect]
     Active Substance: VENETOCLAX
     Dosage: MONOTHERAPY
     Route: 048
     Dates: start: 202006

REACTIONS (5)
  - Thrombocytopenia [Unknown]
  - Neutropenia [Unknown]
  - Hepatosplenomegaly [Unknown]
  - Leukopenia [Unknown]
  - Lymphadenopathy [Unknown]

NARRATIVE: CASE EVENT DATE: 2020
